FAERS Safety Report 5877880-6 (Version None)
Quarter: 2008Q3

REPORT INFORMATION
  Report Type: 
  Country: None (occurrence: None)
  Receive Date: 20080911
  Receipt Date: 20080908
  Transmission Date: 20090109
  Serious: Yes (Life-Threatening, Hospitalization, Other)
  Sender: FDA-Public Use
  Company Number: US-RB-003900-08

PATIENT
  Sex: Female

DRUGS (1)
  1. SUBOXONE [Suspect]
     Dosage: 4 MG INITIAL DOSE, CONTINUED 4 MG AT DIFFERENT TIME INTERVALS UP TO 20 MG FIRST DAY OF INDUCTION
     Route: 060
     Dates: start: 20080904, end: 20080904

REACTIONS (2)
  - MYOCARDIAL INFARCTION [None]
  - WITHDRAWAL SYNDROME [None]
